FAERS Safety Report 9719707 (Version 1)
Quarter: 2013Q4

REPORT INFORMATION
  Report Type: Spontaneous
  Country: US (occurrence: US)
  Receive Date: 20131128
  Receipt Date: 20131128
  Transmission Date: 20140711
  Serious: No
  Sender: FDA-Public Use
  Company Number: US-US-EMD SERONO, INC.-7251341

PATIENT
  Sex: Female

DRUGS (1)
  1. REBIF [Suspect]
     Indication: PRODUCT USED FOR UNKNOWN INDICATION
     Dates: start: 2006, end: 201309

REACTIONS (2)
  - Urinary tract infection [Unknown]
  - Multiple sclerosis relapse [Unknown]
